FAERS Safety Report 10854365 (Version 1)
Quarter: 2015Q1

REPORT INFORMATION
  Report Type: Spontaneous
  Country: IT (occurrence: None)
  Receive Date: 20150218
  Receipt Date: 20150218
  Transmission Date: 20150721
  Serious: Yes (Other)
  Sender: FDA-Public Use
  Company Number: 8010594D

PATIENT
  Age: 45 Year
  Sex: Female

DRUGS (1)
  1. EUTIROX (LEVOTHYROXINE SODIUM) [Suspect]
     Active Substance: LEVOTHYROXINE SODIUM
     Indication: HYPOTHYROIDISM

REACTIONS (3)
  - Coeliac disease [None]
  - Abdominal pain upper [None]
  - Anaemia [None]
